FAERS Safety Report 23504794 (Version 1)
Quarter: 2024Q1

REPORT INFORMATION
  Report Type: Spontaneous
  Country: GB (occurrence: GB)
  Receive Date: 20240209
  Receipt Date: 20240209
  Transmission Date: 20240410
  Serious: No
  Sender: FDA-Public Use
  Company Number: None

PATIENT
  Age: 93 Year
  Sex: Female
  Weight: 45 kg

DRUGS (26)
  1. CEPHALEXIN [Suspect]
     Active Substance: CEPHALEXIN
     Indication: Product used for unknown indication
     Dosage: 1500 MILLIGRAM, QD
     Route: 065
     Dates: start: 20231011
  2. Adcal [Concomitant]
     Indication: Ill-defined disorder
     Dosage: UNK, BID (TAKE ONE TWICE DAILY)
     Route: 065
     Dates: start: 20230519, end: 20230816
  3. Aymes shake [Concomitant]
     Indication: Nutritional supplementation
     Dosage: UNK, QD (1 DAILY)
     Route: 065
     Dates: start: 20230519, end: 20230816
  4. Aymes shake [Concomitant]
     Indication: Ill-defined disorder
  5. BISOPROLOL [Concomitant]
     Active Substance: BISOPROLOL\BISOPROLOL FUMARATE
     Indication: Ill-defined disorder
     Dosage: UNK, QD (TAKE ONE DAILY)
     Route: 065
     Dates: start: 20230519
  6. CALAMINE [Concomitant]
     Active Substance: CALAMINE\FERRIC OXIDE RED\ZINC OXIDE
     Indication: Ill-defined disorder
     Dosage: UNK, PRN (APPLY AS NEEDED)
     Route: 065
     Dates: start: 20231020
  7. Calogen extra/Calogen extra shots [Concomitant]
     Indication: Nutritional supplementation
     Dosage: 40 MILLILITER, QD (1X40MLS ONE DAILY)
     Route: 065
     Dates: start: 20230815, end: 20230815
  8. Calogen extra/Calogen extra shots [Concomitant]
     Indication: Ill-defined disorder
     Dosage: UNK, QD (ONE DAILY)
     Route: 065
     Dates: start: 20230901, end: 20230915
  9. CLARITHROMYCIN [Concomitant]
     Active Substance: CLARITHROMYCIN
     Indication: Ill-defined disorder
     Dosage: UNK, BID (TAKE ONE EVERY 12 HRS)
     Route: 065
     Dates: start: 20231020
  10. DOXYCYCLINE [Concomitant]
     Active Substance: DOXYCYCLINE
     Indication: Ill-defined disorder
     Dosage: UNK (TWO TABLETS ON FIRST DAY THEN ONE DAILY FROM TH...)
     Route: 065
     Dates: start: 20231003, end: 20231010
  11. FEXOFENADINE [Concomitant]
     Active Substance: FEXOFENADINE HYDROCHLORIDE
     Indication: Ill-defined disorder
     Dosage: UNK, QD (TAKE ONE DAILY FOR THE NEXT 2 WEEKS WHEN ITCHIN...)
     Route: 065
     Dates: start: 20231020
  12. Fresubin 2kcal creme [Concomitant]
     Indication: Nutritional supplementation
     Dosage: UNK, BID (USE AS DIRECTED 1 POT TWICE A DAY)
     Route: 065
     Dates: start: 20230519, end: 20230816
  13. Fresubin 2kcal creme [Concomitant]
     Indication: Ill-defined disorder
  14. GLYCOPYRROLATE [Concomitant]
     Active Substance: GLYCOPYRROLATE
     Indication: Ill-defined disorder
     Dosage: UNK, PRN (0.2-0.4MG WHEN REQUIRED 4 HOURLY SUBCUT)
     Route: 065
     Dates: start: 20230823, end: 20230824
  15. HALOPERIDOL [Concomitant]
     Active Substance: HALOPERIDOL
     Indication: Ill-defined disorder
     Dosage: UNK, PRN (WHEN REQUIRED TO BE TAKEN THREE TIMES D)
     Route: 065
     Dates: start: 20230823, end: 20230824
  16. Medi derma-S [Concomitant]
     Indication: Ill-defined disorder
     Dosage: UNK (USE AS DIRECTED)
     Route: 065
     Dates: start: 20230919, end: 20230920
  17. MIDAZOLAM [Concomitant]
     Active Substance: MIDAZOLAM
     Indication: Ill-defined disorder
     Dosage: UNK, PRN (2.5-5MG WHEN REQUIRED 2 HOURLY SUBCUT)
     Route: 065
     Dates: start: 20230823, end: 20230824
  18. MIRTAZAPINE [Concomitant]
     Active Substance: MIRTAZAPINE
     Indication: Ill-defined disorder
     Dosage: UNK, HS (TAKE ONE AT NIGHT)
     Route: 065
     Dates: start: 20230519, end: 20230818
  19. MORPHINE SULFATE [Concomitant]
     Active Substance: MORPHINE SULFATE
     Indication: Ill-defined disorder
     Dosage: UNK, PRN (1.5-2.5MG WHEN REQUIRED 2 HOURLY SUBCUT)
     Route: 065
     Dates: start: 20230823, end: 20230824
  20. NYSTATIN [Concomitant]
     Active Substance: NYSTATIN
     Indication: Ill-defined disorder
     Dosage: 1 MILLILITER, QID
     Route: 065
     Dates: start: 20230818, end: 20230825
  21. NYSTATIN [Concomitant]
     Active Substance: NYSTATIN
     Indication: Oral candidiasis
  22. ACETAMINOPHEN [Concomitant]
     Active Substance: ACETAMINOPHEN
     Indication: Ill-defined disorder
     Dosage: UNK, PRN (1-2 WHEN REQUIRED TO BE TAKEN FOUR TIMES DAILY MAX)
     Route: 065
     Dates: start: 20230816, end: 20230828
  23. RIVAROXABAN [Concomitant]
     Active Substance: RIVAROXABAN
     Indication: Ill-defined disorder
     Dosage: UNK, QD (TAKE ONE DAILY)
     Route: 065
     Dates: start: 20230519
  24. SENNA [Concomitant]
     Active Substance: SENNA LEAF\SENNOSIDES\SENNOSIDES A AND B
     Indication: Constipation
     Dosage: UNK, HS (TAKE 2 AT NIGHT FOR CONSTIPATION AS DIRECTED)
     Route: 065
     Dates: start: 20230519
  25. SENNA [Concomitant]
     Active Substance: SENNA LEAF\SENNOSIDES\SENNOSIDES A AND B
     Indication: Ill-defined disorder
  26. WATER [Concomitant]
     Active Substance: WATER
     Indication: Ill-defined disorder
     Dosage: UNK, PRN (AS REQUIRED SUBCUT INJECTION - DILUENT FOR WHEN..)
     Route: 058
     Dates: start: 20230823, end: 20230824

REACTIONS (1)
  - Urticaria [Recovered/Resolved]

NARRATIVE: CASE EVENT DATE: 20231017
